FAERS Safety Report 25744761 (Version 1)
Quarter: 2025Q3

REPORT INFORMATION
  Report Type: Other
  Country: AU (occurrence: AU)
  Receive Date: 20250901
  Receipt Date: 20250901
  Transmission Date: 20251020
  Serious: Yes (Other)
  Sender: LUPIN
  Company Number: AU-LUPIN PHARMACEUTICALS INC.-2025-07606

PATIENT
  Age: 47 Year
  Sex: Female

DRUGS (2)
  1. ARIPIPRAZOLE [Suspect]
     Active Substance: ARIPIPRAZOLE
     Indication: Product used for unknown indication
     Route: 065
  2. ZUCLOPENTHIXOL DECANOATE [Suspect]
     Active Substance: ZUCLOPENTHIXOL DECANOATE
     Indication: Product used for unknown indication
     Route: 065

REACTIONS (9)
  - Acute respiratory failure [Unknown]
  - Mental impairment [Unknown]
  - Schizophrenia [Unknown]
  - Tardive dyskinesia [Unknown]
  - Dyspnoea [Unknown]
  - Hyperkinesia [Unknown]
  - Loss of personal independence in daily activities [Unknown]
  - Metabolic syndrome [Unknown]
  - Refusal of treatment by patient [Unknown]
